FAERS Safety Report 12747297 (Version 1)
Quarter: 2016Q3

REPORT INFORMATION
  Report Type: Spontaneous
  Country: US (occurrence: US)
  Receive Date: 20160915
  Receipt Date: 20160915
  Transmission Date: 20161109
  Serious: No
  Sender: FDA-Public Use
  Company Number: US-JAZZ-2016-US-009701

PATIENT
  Sex: Female

DRUGS (39)
  1. VITAMIN B COMPLEX [Concomitant]
     Active Substance: CYANOCOBALAMIN\DEXPANTHENOL\NIACINAMIDE\PYRIDOXINE HYDROCHLORIDE\RIBOFLAVIN 5^-PHOSPHATE SODIUM\THIAMINE HYDROCHLORIDE\VITAMIN B COMPLEX
  2. MAGNESIUM [Concomitant]
     Active Substance: MAGNESIUM
  3. PROBIOTIC [Concomitant]
     Active Substance: PROBIOTICS NOS
  4. KLONOPIN [Concomitant]
     Active Substance: CLONAZEPAM
  5. MELATONIN [Concomitant]
     Active Substance: MELATONIN
  6. SINGULAIR [Concomitant]
     Active Substance: MONTELUKAST SODIUM
  7. VITAMIN D3 [Concomitant]
     Active Substance: CHOLECALCIFEROL
  8. POTASSIUM GLUCONATE [Concomitant]
     Active Substance: POTASSIUM GLUCONATE
  9. CYMBALTA [Concomitant]
     Active Substance: DULOXETINE HYDROCHLORIDE
  10. MULTIPLE VITAMINS [Concomitant]
     Active Substance: VITAMINS
  11. OYSTER SHELL CALCIUM +D [Concomitant]
  12. RANITIDINE. [Concomitant]
     Active Substance: RANITIDINE
  13. XYREM [Suspect]
     Active Substance: SODIUM OXYBATE
     Dosage: 3.5 G, BID
     Route: 048
     Dates: start: 201411, end: 2015
  14. GABAPENTIN. [Suspect]
     Active Substance: GABAPENTIN
     Indication: PRODUCT USED FOR UNKNOWN INDICATION
     Dosage: UNK
  15. GARLIC. [Concomitant]
     Active Substance: GARLIC
  16. NOVOLOG [Concomitant]
     Active Substance: INSULIN ASPART
  17. URSODIOL. [Concomitant]
     Active Substance: URSODIOL
  18. NORCO [Concomitant]
     Active Substance: ACETAMINOPHEN\HYDROCODONE BITARTRATE
  19. ALOE VERA [Concomitant]
     Active Substance: ALOE VERA LEAF
  20. LASIX [Concomitant]
     Active Substance: FUROSEMIDE
  21. OMEPRAZOLE DR [Concomitant]
     Active Substance: OMEPRAZOLE
  22. OXYBUTYNIN CHLORIDE ER [Concomitant]
     Active Substance: OXYBUTYNIN CHLORIDE
  23. VICODIN [Concomitant]
     Active Substance: ACETAMINOPHEN\HYDROCODONE BITARTRATE
  24. DIOVAN [Concomitant]
     Active Substance: VALSARTAN
  25. LYSINE HYDROCHLORIDE [Concomitant]
     Active Substance: LYSINE HYDROCHLORIDE
  26. LIDOCAINE. [Concomitant]
     Active Substance: LIDOCAINE
  27. MIRALAX [Concomitant]
     Active Substance: POLYETHYLENE GLYCOL 3350
  28. VITAMIN C [Concomitant]
     Active Substance: ASCORBIC ACID
  29. LINZESS [Concomitant]
     Active Substance: LINACLOTIDE
  30. NUVIGIL [Concomitant]
     Active Substance: ARMODAFINIL
  31. THERMAZENE [Concomitant]
     Active Substance: SILVER SULFADIAZINE
  32. TURMERIC [Concomitant]
     Active Substance: TURMERIC
  33. XYREM [Suspect]
     Active Substance: SODIUM OXYBATE
     Indication: NARCOLEPSY
     Dosage: 3 G, BID
     Route: 048
     Dates: start: 201409, end: 201410
  34. LEVEMIR [Concomitant]
     Active Substance: INSULIN DETEMIR
  35. FLONASE ALLERGY RLF [Concomitant]
  36. XYREM [Suspect]
     Active Substance: SODIUM OXYBATE
     Dosage: 2 G, QD
     Route: 048
     Dates: start: 201504
  37. ATENOLOL. [Concomitant]
     Active Substance: ATENOLOL
  38. BENTYL [Concomitant]
     Active Substance: DICYCLOMINE HYDROCHLORIDE
  39. LIPITOR [Concomitant]
     Active Substance: ATORVASTATIN CALCIUM

REACTIONS (2)
  - Somnolence [Not Recovered/Not Resolved]
  - Wrong technique in product usage process [Unknown]
